FAERS Safety Report 24327509 (Version 2)
Quarter: 2024Q4

REPORT INFORMATION
  Report Type: Spontaneous
  Country: US (occurrence: US)
  Receive Date: 20240917
  Receipt Date: 20241007
  Transmission Date: 20250114
  Serious: Yes (Life-Threatening, Hospitalization)
  Sender: MYLAN
  Company Number: US-MYLANLABS-2024M1083502

PATIENT
  Age: 63 Year
  Sex: Male
  Weight: 86.6 kg

DRUGS (5)
  1. EPINEPHRINE [Suspect]
     Active Substance: EPINEPHRINE
     Indication: Angioedema
     Dosage: 0.3 MILLIGRAM
     Route: 030
     Dates: start: 20240826
  2. EPINEPHRINE [Suspect]
     Active Substance: EPINEPHRINE
     Indication: Angioedema
     Dosage: 1 MICROGRAM, QMINUTE, INTRAVENOUS INFUSION
     Route: 042
     Dates: start: 20240826
  3. DIPHENHYDRAMINE [Suspect]
     Active Substance: DIPHENHYDRAMINE
     Indication: Angioedema
     Dosage: 25 MILLIGRAM
     Route: 042
     Dates: start: 20240826
  4. DEXAMETHASONE [Suspect]
     Active Substance: DEXAMETHASONE
     Indication: Angioedema
     Dosage: 10 MILLIGRAM
     Route: 042
     Dates: start: 20240826
  5. FAMOTIDINE [Suspect]
     Active Substance: FAMOTIDINE
     Indication: Angioedema
     Dosage: 20 MILLIGRAM
     Route: 042
     Dates: start: 20240826

REACTIONS (2)
  - Drug ineffective [Unknown]
  - Off label use [Unknown]
